FAERS Safety Report 8473100-7 (Version None)
Quarter: 2012Q2

REPORT INFORMATION
  Report Type: 
  Country: None (occurrence: None)
  Receive Date: 20120627
  Receipt Date: 20120612
  Transmission Date: 20120825
  Serious: Yes (Hospitalization, Other)
  Sender: FDA-Public Use
  Company Number: BR-ROCHE-1075519

PATIENT
  Sex: Female

DRUGS (3)
  1. FLUTICASONE PROPIONATE/SALMETEROL [Concomitant]
  2. DUOVENT [Concomitant]
  3. XOLAIR [Suspect]
     Indication: ASTHMA
     Dates: start: 20120425

REACTIONS (10)
  - TONSILLITIS [None]
  - COUGH [None]
  - OROPHARYNGEAL PAIN [None]
  - LUNG DISORDER [None]
  - BRONCHOSPASM [None]
  - SPEECH DISORDER [None]
  - DEPRESSED MOOD [None]
  - SNEEZING [None]
  - PAIN IN EXTREMITY [None]
  - CRYING [None]
